FAERS Safety Report 7258231-1 (Version None)
Quarter: 2011Q1

REPORT INFORMATION
  Report Type: 
  Country: None (occurrence: None)
  Receive Date: 20110129
  Receipt Date: 20100727
  Transmission Date: 20110831
  Serious: Yes (Hospitalization)
  Sender: FDA-Public Use
  Company Number: US-ABBOTT-10P-163-0660281-00

PATIENT
  Sex: Female
  Weight: 70.37 kg

DRUGS (9)
  1. HUMIRA [Suspect]
     Indication: RHEUMATOID ARTHRITIS
     Dates: start: 20100101, end: 20100201
  2. WELLBUTRIN [Concomitant]
     Indication: DEPRESSION
  3. XANAX [Concomitant]
     Indication: DEPRESSION
  4. TRAZODONE HCL [Concomitant]
     Indication: INSOMNIA
  5. HUMIRA [Suspect]
     Dates: start: 20100401
  6. CYMBALTA [Concomitant]
     Indication: DEPRESSION
  7. LORCET-HD [Concomitant]
     Indication: PAIN
     Dosage: 10/650 MG
  8. SOMA [Concomitant]
     Indication: PAIN
  9. PROZAC [Concomitant]
     Indication: DEPRESSION

REACTIONS (1)
  - PNEUMONIA [None]
